FAERS Safety Report 8486374-3 (Version None)
Quarter: 2012Q3

REPORT INFORMATION
  Report Type: 
  Country: None (occurrence: None)
  Receive Date: 20120703
  Receipt Date: 20120625
  Transmission Date: 20120928
  Serious: Yes (Other)
  Sender: FDA-Public Use
  Company Number: JP-GLAXOSMITHKLINE-B0809911A

PATIENT
  Age: 71 Year
  Sex: Female

DRUGS (1)
  1. PAXIL [Suspect]
     Indication: DEPRESSION
     Route: 048

REACTIONS (4)
  - DEPRESSIVE SYMPTOM [None]
  - ANXIETY [None]
  - NAUSEA [None]
  - ACTIVATION SYNDROME [None]
